FAERS Safety Report 20892991 (Version 1)
Quarter: 2022Q2

REPORT INFORMATION
  Report Type: Spontaneous
  Country: US (occurrence: None)
  Receive Date: 20220531
  Receipt Date: 20220531
  Transmission Date: 20220721
  Serious: No
  Sender: FDA-Public Use
  Company Number: US-Hikma Pharmaceuticals USA Inc.-US-H14001-21-04303

PATIENT
  Sex: Male

DRUGS (5)
  1. FLUTICASONE [Suspect]
     Active Substance: FLUTICASONE
     Indication: Nasal congestion
     Dosage: UNKNOWN
     Route: 045
     Dates: start: 2020, end: 2020
  2. FLUTICASONE [Suspect]
     Active Substance: FLUTICASONE
     Dosage: 150 MCG (THREE SPRAYS) IN EACH NOSTRIL, TWICE DAILY
     Route: 045
     Dates: start: 20210923, end: 20210923
  3. FLUTICASONE [Suspect]
     Active Substance: FLUTICASONE
     Dosage: 150 MCG (THREE SPRAYS) IN EACH NOSTRIL, SINGLE
     Route: 045
     Dates: start: 20210924, end: 20210924
  4. QUETIAPINE [Suspect]
     Active Substance: QUETIAPINE
     Indication: Insomnia
     Dosage: UNKNOWN
     Route: 048
     Dates: start: 20210923, end: 20210923
  5. ATENOLOL [Concomitant]
     Active Substance: ATENOLOL
     Indication: Product used for unknown indication
     Dosage: UNKNOWN
     Route: 065

REACTIONS (3)
  - Dry mouth [Not Recovered/Not Resolved]
  - Incorrect dose administered [Unknown]
  - Inappropriate schedule of product administration [Unknown]

NARRATIVE: CASE EVENT DATE: 20210923
